FAERS Safety Report 6456192-6 (Version None)
Quarter: 2009Q4

REPORT INFORMATION
  Report Type: 
  Country: None (occurrence: None)
  Receive Date: 20091124
  Receipt Date: 20091124
  Transmission Date: 20100525
  Serious: No
  Sender: FDA-Public Use
  Company Number: None

PATIENT
  Age: 84 Year
  Sex: Male
  Weight: 78.47 kg

DRUGS (1)
  1. FENTANYL [Suspect]
     Indication: PAIN
     Dosage: 50 MCG OTHER TOP
     Route: 061
     Dates: start: 20091103, end: 20091109

REACTIONS (4)
  - ASTHENIA [None]
  - COORDINATION ABNORMAL [None]
  - LETHARGY [None]
  - SEDATION [None]
